FAERS Safety Report 17281458 (Version 1)
Quarter: 2020Q1

REPORT INFORMATION
  Report Type: Spontaneous
  Country: ES (occurrence: ES)
  Receive Date: 20200117
  Receipt Date: 20200117
  Transmission Date: 20200409
  Serious: Yes (Hospitalization)
  Sender: FDA-Public Use
  Company Number: ES-TEVA-2020-ES-1168258

PATIENT
  Age: 77 Year
  Sex: Male

DRUGS (6)
  1. LOSARTAN AND HYDROCHLOROTHIAZIDE [Concomitant]
     Active Substance: HYDROCHLOROTHIAZIDE\LOSARTAN POTASSIUM
     Dosage: 1 DOSAGE FORM PER DAY
     Route: 048
     Dates: start: 20180815
  2. PREGABALINA (3897A) [Concomitant]
     Active Substance: PREGABALIN
     Dosage: 75MG EVERY 2 DAYS
     Dates: start: 20180815
  3. RIVAROXABAN (8281A) [Concomitant]
     Active Substance: RIVAROXABAN
     Dosage: 20MG PER DAY
     Dates: start: 20190219
  4. ATORVASTATINA 40 MG COMPRIMIDO [Concomitant]
     Dosage: 40MG PER DAY
     Dates: start: 20180717
  5. METFORMINA (1359A) [Suspect]
     Active Substance: METFORMIN HYDROCHLORIDE
     Indication: HYPERGLYCAEMIA
     Dosage: 850MG EVERY 2 DAYS
     Route: 048
     Dates: start: 20180815, end: 20190406
  6. BISOPROLOL (2328A) [Concomitant]
     Active Substance: BISOPROLOL
     Dosage: 2.5MG EVERY 2 DAYS
     Route: 048
     Dates: start: 20190218

REACTIONS (2)
  - Seizure [Recovered/Resolved]
  - Lactic acidosis [Recovered/Resolved]

NARRATIVE: CASE EVENT DATE: 20190406
